FAERS Safety Report 6236185-4 (Version None)
Quarter: 2009Q2

REPORT INFORMATION
  Report Type: 
  Country: None (occurrence: None)
  Receive Date: 20090616
  Receipt Date: 20090602
  Transmission Date: 20091009
  Serious: Yes (Other)
  Sender: FDA-Public Use
  Company Number: 09-000894

PATIENT
  Age: 70 Year
  Sex: Male
  Weight: 90.7 kg

DRUGS (4)
  1. TACLONEX [Suspect]
     Indication: PSORIASIS
     Dosage: TOPICAL
     Route: 061
  2. PRAVACHOL [Concomitant]
  3. HYTRIN [Concomitant]
  4. VALIUM [Concomitant]

REACTIONS (3)
  - CONDITION AGGRAVATED [None]
  - PRECANCEROUS SKIN LESION [None]
  - PSORIASIS [None]
